FAERS Safety Report 4445085-1 (Version None)
Quarter: 2004Q3

REPORT INFORMATION
  Report Type: 
  Country: None (occurrence: None)
  Receive Date: 20040903
  Receipt Date: 20040823
  Transmission Date: 20050211
  Serious: Yes (Other)
  Sender: FDA-Public Use
  Company Number: 200414144BCC

PATIENT
  Age: 71 Year
  Sex: Male
  Weight: 107.9561 kg

DRUGS (4)
  1. ALEVE [Suspect]
     Indication: PAIN
     Dosage: 220 MG, ORAL ; SEE IMAGE
     Route: 048
     Dates: start: 20040201
  2. ALEVE [Suspect]
     Indication: PAIN
     Dosage: 220 MG, ORAL ; SEE IMAGE
     Route: 048
     Dates: start: 20040819
  3. ASPIRIN REGIMEN [Concomitant]
  4. TERAZOSIN HCL [Concomitant]

REACTIONS (1)
  - EXTRASYSTOLES [None]
